FAERS Safety Report 10056797 (Version 2)
Quarter: 2014Q2

REPORT INFORMATION
  Report Type: Spontaneous
  Country: FR (occurrence: FR)
  Receive Date: 20140403
  Receipt Date: 20140428
  Transmission Date: 20141212
  Serious: Yes (Other)
  Sender: FDA-Public Use
  Company Number: FR-JNJFOC-20140318123

PATIENT
  Age: 45 Year
  Sex: Male
  Weight: 100 kg

DRUGS (3)
  1. STELARA [Suspect]
     Indication: PSORIATIC ARTHROPATHY
     Route: 058
     Dates: start: 20100812, end: 20140331
  2. STELARA [Suspect]
     Indication: PSORIASIS
     Route: 058
     Dates: start: 20100812, end: 20140331
  3. METHOTREXATE [Concomitant]
     Indication: PSORIASIS
     Route: 065
     Dates: start: 2003, end: 2014

REACTIONS (2)
  - Microcytic anaemia [Unknown]
  - Adenocarcinoma of colon [Unknown]
